FAERS Safety Report 9390399 (Version 2)
Quarter: 2013Q3

REPORT INFORMATION
  Report Type: Spontaneous
  Country: US (occurrence: None)
  Receive Date: 20130701
  Receipt Date: 20130723
  Transmission Date: 20140515
  Serious: Yes (Hospitalization)
  Sender: FDA-Public Use
  Company Number: 2013US001500

PATIENT
  Age: 45 Year
  Sex: Male
  Weight: 87 kg

DRUGS (10)
  1. ICLUSIG [Suspect]
     Indication: CHRONIC MYELOID LEUKAEMIA
     Route: 048
     Dates: start: 20130405, end: 20130415
  2. ABILIFY (ARIPIPRAZOLE) [Concomitant]
  3. KLOR-CON (POTASSIUM) [Concomitant]
  4. AMLODIPINE (AMLODIPINE) [Concomitant]
  5. METOPROLOL (METOPROLOL) [Concomitant]
  6. HYDROCHLOROTHIAZIDE (HYDROCHLOROTHIAZIDE) [Concomitant]
  7. VITAMIN D2 (VITAMIN D2) [Concomitant]
  8. TRILEPTAL (OXCARBAZEPINE) [Concomitant]
  9. REGLAN (METOCLOPRAMIDE) [Concomitant]
  10. FLEXERIL (CYCLOBENZAPRINE HYDROCHLORIDE) [Concomitant]

REACTIONS (8)
  - Staphylococcal infection [None]
  - Hepatotoxicity [None]
  - Alopecia [None]
  - Liver function test abnormal [None]
  - Blood alkaline phosphatase [None]
  - Haemoglobin decreased [None]
  - Haematocrit decreased [None]
  - Blood sodium increased [None]
